FAERS Safety Report 6791560-4 (Version None)
Quarter: 2010Q2

REPORT INFORMATION
  Report Type: 
  Country: None (occurrence: None)
  Receive Date: 20100624
  Receipt Date: 20090203
  Transmission Date: 20101027
  Serious: No
  Sender: FDA-Public Use
  Company Number: US-PFIZER INC-2008057583

PATIENT
  Sex: Female

DRUGS (2)
  1. PIROXICAM [Suspect]
  2. PLAVIX [Suspect]
     Indication: ARTHRITIS

REACTIONS (1)
  - DYSGEUSIA [None]
